FAERS Safety Report 6012628-6 (Version None)
Quarter: 2008Q4

REPORT INFORMATION
  Report Type: 
  Country: None (occurrence: None)
  Receive Date: 20081218
  Receipt Date: 20081205
  Transmission Date: 20090506
  Serious: Yes (Death)
  Sender: FDA-Public Use
  Company Number: NL-GENENTECH-273671

PATIENT
  Sex: Female

DRUGS (10)
  1. RITUXIMAB [Suspect]
     Indication: LYMPHOMA
     Dosage: 10 MG, UNK
     Route: 037
     Dates: start: 20080201, end: 20080514
  2. METHOTREXATE [Suspect]
     Indication: LYMPHOMA
     Dosage: 3000 MG/M2, UNK
     Route: 042
     Dates: start: 20080509, end: 20080509
  3. BUSULFAN [Suspect]
     Indication: STEM CELL TRANSPLANT
     Dosage: 64 MG, UNK
     Route: 048
     Dates: start: 20080601, end: 20080604
  4. CYCLOFOSFAMIDE [Suspect]
     Indication: STEM CELL TRANSPLANT
     Dosage: 1.2 G, UNK
     Route: 042
     Dates: start: 20080605, end: 20080606
  5. KYTRIL [Concomitant]
     Indication: DRUG USE FOR UNKNOWN INDICATION
     Dosage: UNK
     Dates: start: 20080613
  6. NEXIUM [Concomitant]
     Indication: DRUG USE FOR UNKNOWN INDICATION
     Dosage: UNK
     Dates: start: 20080616
  7. CALCIUM PHOSPHATE [Concomitant]
     Indication: DRUG USE FOR UNKNOWN INDICATION
     Dosage: UNK
     Dates: start: 20080618
  8. CIPROFLOXACIN HCL [Concomitant]
     Indication: DRUG USE FOR UNKNOWN INDICATION
     Dosage: UNK
     Dates: start: 20080626
  9. RBC TRANSFUSION [Concomitant]
     Indication: DRUG USE FOR UNKNOWN INDICATION
  10. PLATELETS [Concomitant]
     Indication: DRUG USE FOR UNKNOWN INDICATION

REACTIONS (1)
  - VENOOCCLUSIVE DISEASE [None]
